FAERS Safety Report 16646680 (Version 1)
Quarter: 2019Q3

REPORT INFORMATION
  Report Type: Report from Study
  Country: DE (occurrence: DE)
  Receive Date: 20190730
  Receipt Date: 20190730
  Transmission Date: 20191004
  Serious: Yes (Other)
  Sender: FDA-Public Use
  Company Number: DE-KYOWAKIRIN-2019BKK011120

PATIENT

DRUGS (4)
  1. BUROSUMAB [Suspect]
     Active Substance: BUROSUMAB
     Dosage: UNKNOWN
     Route: 058
     Dates: start: 20190625, end: 20190625
  2. ENANTONE LP [Concomitant]
     Active Substance: LEUPROLIDE ACETATE
     Indication: PRODUCT USED FOR UNKNOWN INDICATION
     Dosage: UNKNOWN, 1X/3MONTHS
     Route: 058
  3. BUROSUMAB [Suspect]
     Active Substance: BUROSUMAB
     Indication: HEREDITARY HYPOPHOSPHATAEMIC RICKETS
     Dosage: 30 MG
     Route: 058
     Dates: start: 20190710
  4. BUROSUMAB [Suspect]
     Active Substance: BUROSUMAB
     Dosage: 10 MG
     Route: 058
     Dates: start: 20181001

REACTIONS (2)
  - Inappropriate schedule of product administration [Recovered/Resolved]
  - Ankle operation [Recovered/Resolved]

NARRATIVE: CASE EVENT DATE: 20190710
